FAERS Safety Report 5599814-4 (Version None)
Quarter: 2008Q1

REPORT INFORMATION
  Report Type: 
  Country: None (occurrence: None)
  Receive Date: 20080118
  Receipt Date: 20080107
  Transmission Date: 20080703
  Serious: Yes (Death)
  Sender: FDA-Public Use
  Company Number: US-WYE-H02023008

PATIENT
  Age: 59 Year
  Sex: Male

DRUGS (6)
  1. CALTRATE (CALCIUM CARBONATE, TABLET) [Suspect]
     Dosage: ORAL
     Route: 047
     Dates: start: 20060101, end: 20060101
  2. ACETAMINOPHEN [Suspect]
     Dates: start: 20060101, end: 20060101
  3. CODEINE SUL TAB [Suspect]
  4. DIPHENHYDRAMINE HCL [Suspect]
     Dates: start: 20060101, end: 20060101
  5. LISINOPRIL [Suspect]
  6. NITROGLYCERIN [Suspect]
     Dates: start: 20060101, end: 20060101

REACTIONS (2)
  - COMPLETED SUICIDE [None]
  - INTENTIONAL OVERDOSE [None]
